FAERS Safety Report 9820920 (Version 2)
Quarter: 2014Q1

REPORT INFORMATION
  Report Type: Spontaneous
  Country: ZA (occurrence: ZA)
  Receive Date: 20140116
  Receipt Date: 20140116
  Transmission Date: 20141002
  Serious: Yes (Hospitalization)
  Sender: FDA-Public Use
  Company Number: ZA-ABBVIE-13P-143-1163826-00

PATIENT
  Age: 67 Year
  Sex: Female
  Weight: 39.6 kg

DRUGS (4)
  1. HUMIRA [Suspect]
     Indication: RHEUMATOID ARTHRITIS
     Route: 058
     Dates: start: 20130527, end: 20131025
  2. PHARMAPRESS [Concomitant]
     Indication: HYPERTENSION
     Dosage: DURATION: 10 YEARS
     Route: 048
  3. ASPERVO [Concomitant]
     Indication: BLOOD CHOLESTEROL
     Dosage: DURATION: 10 YEARS
     Route: 048
  4. COXFLAM [Concomitant]
     Indication: ARTHRITIS
     Dosage: DURATION: 10 YEARS
     Route: 048

REACTIONS (7)
  - Lung infiltration [Recovering/Resolving]
  - Pneumonia [Recovering/Resolving]
  - Influenza [Unknown]
  - Cough [Unknown]
  - Dyspnoea [Unknown]
  - Cardiomegaly [Unknown]
  - Bronchitis [Not Recovered/Not Resolved]
